FAERS Safety Report 8586648 (Version 8)
Quarter: 2013Q1

REPORT INFORMATION
  Report Type: Spontaneous
  Country: US (occurrence: US)
  Receive Date: 20120530
  Receipt Date: 20130205
  Transmission Date: 20140127
  Serious: Yes (Hospitalization, Other)
  Sender: FDA-Public Use
  Company Number: US-009507513-1205USA04595

PATIENT
  Sex: Female

DRUGS (6)
  1. FOSAMAX PLUS D [Suspect]
     Indication: OSTEOPOROSIS
     Dosage: 70 MG, QW
     Route: 048
     Dates: start: 200807, end: 200812
  2. FOSAMAX [Suspect]
     Indication: OSTEOPOROSIS
     Route: 048
     Dates: start: 1996, end: 2010
  3. FOSAMAX [Suspect]
     Dosage: 10 MG, UNK
     Route: 048
     Dates: start: 1996, end: 200110
  4. FOSAMAX [Suspect]
     Dosage: 70 MG, QW
     Route: 048
     Dates: start: 200110, end: 200710
  5. ALENDRONATE SODIUM [Suspect]
     Indication: OSTEOPOROSIS
     Dosage: 70 MG, QW
     Route: 048
     Dates: start: 200804, end: 201005
  6. BONIVA [Concomitant]
     Indication: OSTEOPOROSIS
     Dosage: 150 MG, QM
     Route: 048
     Dates: start: 200710, end: 200803

REACTIONS (38)
  - Intramedullary rod insertion [Unknown]
  - Fall [Unknown]
  - Surgery [Unknown]
  - Osteoarthritis [Unknown]
  - Diverticulum [Unknown]
  - Ovarian cyst [Unknown]
  - Leukaemia [Unknown]
  - Cerebrovascular accident [Unknown]
  - Type 2 diabetes mellitus [Unknown]
  - Type V hyperlipidaemia [Unknown]
  - Nephrolithiasis [Unknown]
  - Intervertebral disc disorder [Unknown]
  - Intramedullary rod insertion [Unknown]
  - Lumbar radiculopathy [Unknown]
  - Fall [Unknown]
  - Procedural hypotension [Recovering/Resolving]
  - Femur fracture [Unknown]
  - Femur fracture [Unknown]
  - Respiratory tract congestion [Unknown]
  - Radius fracture [Unknown]
  - Hypertension [Unknown]
  - Blood cholesterol [Unknown]
  - Anaemia [Unknown]
  - Cough [Unknown]
  - Arthritis [Unknown]
  - Bursitis [Unknown]
  - Spinal fracture [Unknown]
  - Plantar fasciitis [Unknown]
  - Fall [Unknown]
  - Gouty arthritis [Unknown]
  - Lumbar spinal stenosis [Unknown]
  - Facet joint syndrome [Unknown]
  - Spondylolisthesis [Unknown]
  - Diverticulum intestinal [Unknown]
  - Renal cyst [Unknown]
  - Back pain [Unknown]
  - Joint swelling [Unknown]
  - Back pain [Not Recovered/Not Resolved]
